FAERS Safety Report 5673954-3 (Version None)
Quarter: 2008Q1

REPORT INFORMATION
  Report Type: 
  Country: None (occurrence: None)
  Receive Date: 20080319
  Receipt Date: 20080319
  Transmission Date: 20080703
  Serious: No
  Sender: FDA-Public Use
  Company Number: None

PATIENT
  Sex: Male
  Weight: 83.9154 kg

DRUGS (1)
  1. TRUSOPT [Suspect]
     Indication: GLAUCOMA
     Dosage: 1 DROP  BID  EYE
     Dates: start: 20080222, end: 20080223

REACTIONS (2)
  - EYE PRURITUS [None]
  - EYE SWELLING [None]
